FAERS Safety Report 24801186 (Version 2)
Quarter: 2025Q1

REPORT INFORMATION
  Report Type: Spontaneous
  Country: SE (occurrence: SE)
  Receive Date: 20250102
  Receipt Date: 20250306
  Transmission Date: 20250409
  Serious: Yes (Other)
  Sender: MERCK SHARP & DOHME LLC
  Company Number: SE-009507513-2412SWE010317

PATIENT
  Sex: Female

DRUGS (1)
  1. KEYTRUDA [Suspect]
     Active Substance: PEMBROLIZUMAB
     Indication: Breast cancer in situ
     Dates: end: 20240305

REACTIONS (2)
  - Glucocorticoid deficiency [Unknown]
  - Hypophysitis [Unknown]

NARRATIVE: CASE EVENT DATE: 20240419
